FAERS Safety Report 23403367 (Version 1)
Quarter: 2024Q1

REPORT INFORMATION
  Report Type: Spontaneous
  Country: CA (occurrence: CA)
  Receive Date: 20240116
  Receipt Date: 20240116
  Transmission Date: 20240409
  Serious: Yes (Life-Threatening, Hospitalization, Other)
  Sender: FDA-Public Use
  Company Number: CA-002147023-NVSC2023CA125745

PATIENT
  Age: 53 Year
  Sex: Male

DRUGS (3)
  1. COSENTYX [Suspect]
     Active Substance: SECUKINUMAB
     Indication: Ankylosing spondylitis
     Dosage: 150 MG, QW, WEEKS 0, 1, 2, 3, AND 4
     Route: 058
     Dates: start: 20230618
  2. ERELZI [Suspect]
     Active Substance: ETANERCEPT-SZZS
     Indication: Product used for unknown indication
     Dosage: UNK
     Route: 058
     Dates: start: 20210809, end: 202110
  3. NAPROXEN [Concomitant]
     Active Substance: NAPROXEN
     Indication: Product used for unknown indication
     Dosage: UNK
     Route: 065

REACTIONS (23)
  - Feeling abnormal [Unknown]
  - Ankylosing spondylitis [Unknown]
  - Arthralgia [Unknown]
  - Gait disturbance [Unknown]
  - Neck pain [Unknown]
  - Pain in extremity [Unknown]
  - Back pain [Unknown]
  - Pain [Unknown]
  - Fatigue [Unknown]
  - Suicidal ideation [Unknown]
  - Lyme disease [Unknown]
  - Hypoaesthesia [Unknown]
  - Malaise [Unknown]
  - Influenza [Unknown]
  - Sinusitis [Unknown]
  - Myalgia [Unknown]
  - Abdominal pain upper [Unknown]
  - Bone swelling [Unknown]
  - Oropharyngeal pain [Unknown]
  - Pharyngeal swelling [Unknown]
  - Dyspnoea [Unknown]
  - Dyspepsia [Unknown]
  - Dizziness [Unknown]

NARRATIVE: CASE EVENT DATE: 20230625
